FAERS Safety Report 5496387-1 (Version None)
Quarter: 2007Q4

REPORT INFORMATION
  Report Type: 
  Country: None (occurrence: None)
  Receive Date: 20071025
  Receipt Date: 20070329
  Transmission Date: 20080405
  Serious: No
  Sender: FDA-Public Use
  Company Number: A0645634A

PATIENT
  Sex: Female

DRUGS (2)
  1. ADVAIR DISKUS 100/50 [Suspect]
     Indication: CHRONIC OBSTRUCTIVE PULMONARY DISEASE
     Dosage: 1PUFF TWICE PER DAY
     Route: 055
     Dates: start: 20010201
  2. FOSAMAX [Concomitant]
     Indication: OSTEOPOROSIS
     Dates: start: 20000201

REACTIONS (2)
  - BONE DENSITY DECREASED [None]
  - OSTEOPOROSIS [None]
